FAERS Safety Report 5469710-1 (Version None)
Quarter: 2007Q3

REPORT INFORMATION
  Report Type: 
  Country: None (occurrence: None)
  Receive Date: 20070926
  Receipt Date: 20070926
  Transmission Date: 20080115
  Serious: Yes (Other)
  Sender: FDA-Public Use
  Company Number: None

PATIENT
  Age: 54 Year
  Sex: Female
  Weight: 58.9676 kg

DRUGS (1)
  1. CHANTIX [Suspect]
     Indication: SMOKING CESSATION THERAPY
     Dosage: 1 MG 2XDAY PO
     Route: 048
     Dates: start: 20070402, end: 20070908

REACTIONS (4)
  - ABNORMAL DREAMS [None]
  - AFFECT LABILITY [None]
  - HOT FLUSH [None]
  - SUICIDAL IDEATION [None]
